FAERS Safety Report 6212933-4 (Version None)
Quarter: 2009Q2

REPORT INFORMATION
  Report Type: 
  Country: None (occurrence: None)
  Receive Date: 20090602
  Receipt Date: 20090602
  Transmission Date: 20091009
  Serious: No
  Sender: FDA-Public Use
  Company Number: None

PATIENT
  Age: 78 Year
  Sex: Male
  Weight: 79.5 kg

DRUGS (1)
  1. CETUXIMAB [Suspect]
     Dosage: 750 MG ONCE IV
     Route: 042
     Dates: start: 20090406, end: 20090406

REACTIONS (2)
  - CHEST DISCOMFORT [None]
  - DYSPNOEA [None]
